FAERS Safety Report 14204154 (Version 1)
Quarter: 2017Q4

REPORT INFORMATION
  Report Type: Spontaneous
  Country: US (occurrence: US)
  Receive Date: 20171117
  Receipt Date: 20171117
  Transmission Date: 20180321
  Serious: Yes (Hospitalization, Disabling)
  Sender: FDA-Public Use
  Company Number: None

PATIENT
  Age: 37 Year
  Sex: Female
  Weight: 51.75 kg

DRUGS (7)
  1. SYNTHROID [Concomitant]
     Active Substance: LEVOTHYROXINE SODIUM
  2. BIRTH CONTROL [Concomitant]
     Active Substance: UNSPECIFIED INGREDIENT
  3. REACTINE [Concomitant]
     Active Substance: CETIRIZINE HYDROCHLORIDE
  4. VITAMIN B COMPLEX [Concomitant]
     Active Substance: CYANOCOBALAMIN\DEXPANTHENOL\NIACINAMIDE\PYRIDOXINE HYDROCHLORIDE\RIBOFLAVIN 5^-PHOSPHATE SODIUM\THIAMINE HYDROCHLORIDE\VITAMIN B COMPLEX
  5. OMEGA 3 [Concomitant]
     Active Substance: OMEGA-3 FATTY ACIDS
  6. CORTICOSTEROID [Suspect]
     Active Substance: CORTICOSTEROID NOS
     Indication: ECZEMA
     Dates: start: 20160101, end: 20160814
  7. IRON [Concomitant]
     Active Substance: IRON

REACTIONS (6)
  - Insomnia [None]
  - Rash [None]
  - Fatigue [None]
  - Condition aggravated [None]
  - Skin disorder [None]
  - Hypersensitivity [None]

NARRATIVE: CASE EVENT DATE: 20160814
